FAERS Safety Report 9687103 (Version 2)
Quarter: 2014Q2

REPORT INFORMATION
  Report Type: Spontaneous
  Country: DK (occurrence: DK)
  Receive Date: 20131113
  Receipt Date: 20140616
  Transmission Date: 20141212
  Serious: Yes (Life-Threatening, Hospitalization)
  Sender: FDA-Public Use
  Company Number: DK-B.I. PHARMACEUTICALS,INC./RIDGEFIELD-2013-BI-37330DB

PATIENT
  Age: 83 Year
  Sex: Male
  Weight: 85 kg

DRUGS (4)
  1. PRADAXA [Suspect]
     Indication: ATRIAL FIBRILLATION
     Dosage: 220 MG
     Route: 048
     Dates: start: 20130828, end: 20131028
  2. DIGOXIN DAK [Concomitant]
     Indication: ATRIAL FIBRILLATION
     Dosage: 250 MCG
     Route: 048
     Dates: start: 20130909
  3. SELO-ZOK [Concomitant]
     Indication: ATRIAL FIBRILLATION
     Dosage: 50 MG
     Route: 048
     Dates: start: 20130904
  4. ENALAPRIL [Concomitant]
     Indication: HYPERTENSION
     Dosage: 5 MG
     Route: 048

REACTIONS (1)
  - Angina pectoris [Recovered/Resolved]
